FAERS Safety Report 8614932-1 (Version None)
Quarter: 2012Q3

REPORT INFORMATION
  Report Type: 
  Country: None (occurrence: None)
  Receive Date: 20120810
  Receipt Date: 20120810
  Transmission Date: 20120928
  Serious: Yes (Hospitalization)
  Sender: FDA-Public Use
  Company Number: None

PATIENT
  Age: 30 Year
  Sex: Male

DRUGS (1)
  1. METHYLPREDNISOLONE 4MG TAB [Suspect]
     Dosage: 24 MG ON DAY 1 QID PO
     Route: 048
     Dates: start: 20120709, end: 20120709

REACTIONS (2)
  - AGITATION [None]
  - ANXIETY [None]
